FAERS Safety Report 16875487 (Version 2)
Quarter: 2019Q4

REPORT INFORMATION
  Report Type: Spontaneous
  Country: ES (occurrence: ES)
  Receive Date: 20191002
  Receipt Date: 20191203
  Transmission Date: 20200122
  Serious: Yes (Other)
  Sender: FDA-Public Use
  Company Number: ES-ABBVIE-19K-144-2946505-00

PATIENT
  Age: 58 Year
  Sex: Male

DRUGS (1)
  1. ADALIMUMAB [Suspect]
     Active Substance: ADALIMUMAB
     Indication: LYMPHADENITIS
     Dosage: THE PATIENT STARTED THE TREATMENT 8 MONTHS AGO, RECEIVED A VIAL EVERY MONTH?(2906A)
     Route: 058
     Dates: start: 201901, end: 201909

REACTIONS (2)
  - Pulmonary oedema [Recovering/Resolving]
  - Cardiac failure [Recovering/Resolving]

NARRATIVE: CASE EVENT DATE: 20190917
